FAERS Safety Report 6767037-9 (Version None)
Quarter: 2010Q2

REPORT INFORMATION
  Report Type: 
  Country: None (occurrence: None)
  Receive Date: 20100611
  Receipt Date: 20100601
  Transmission Date: 20101027
  Serious: Yes (Hospitalization, Other)
  Sender: FDA-Public Use
  Company Number: AU-GENENTECH-300149

PATIENT
  Sex: Male

DRUGS (9)
  1. RITUXIMAB [Suspect]
     Indication: DIFFUSE LARGE B-CELL LYMPHOMA
     Dosage: 375 MG/M2, UNK
     Route: 042
     Dates: start: 20090806
  2. CYCLOPHOSPHAMIDE [Suspect]
     Indication: DIFFUSE LARGE B-CELL LYMPHOMA
     Dosage: 750 MG, UNK
     Route: 042
     Dates: start: 20090807
  3. DOXORUBICIN HCL [Suspect]
     Indication: DIFFUSE LARGE B-CELL LYMPHOMA
     Dosage: 45 MG, UNK
     Route: 042
     Dates: start: 20090807
  4. VINCRISTINE [Suspect]
     Indication: DIFFUSE LARGE B-CELL LYMPHOMA
     Dosage: 1.4 MG, UNK
     Route: 042
     Dates: start: 20090807
  5. PEGFILGRASTIM [Suspect]
     Indication: DIFFUSE LARGE B-CELL LYMPHOMA
     Dosage: UNK
     Route: 058
     Dates: start: 20090821
  6. PREDNISONE [Suspect]
     Indication: DIFFUSE LARGE B-CELL LYMPHOMA
     Dosage: 500 MG, UNK
     Route: 048
     Dates: start: 20090806, end: 20090810
  7. PREDNISONE [Suspect]
     Dosage: 500 MG, UNK
     Route: 048
     Dates: start: 20090821, end: 20090825
  8. PREDNISONE [Suspect]
     Dosage: 500 MG, UNK
     Route: 048
     Dates: start: 20090904, end: 20090910
  9. LENOGRASTIM [Suspect]
     Indication: DIFFUSE LARGE B-CELL LYMPHOMA
     Dosage: 263 A?G/HR, UNK
     Route: 065
     Dates: start: 20090808

REACTIONS (2)
  - CONSTIPATION [None]
  - PLATELET COUNT DECREASED [None]
